FAERS Safety Report 25548251 (Version 1)
Quarter: 2025Q3

REPORT INFORMATION
  Report Type: Spontaneous
  Country: AU (occurrence: AU)
  Receive Date: 20250714
  Receipt Date: 20250714
  Transmission Date: 20251021
  Serious: Yes (Death, Other)
  Sender: UNICHEM
  Company Number: AU-UNICHEM LABORATORIES LIMITED-UNI-2025-AU-002682

PATIENT

DRUGS (3)
  1. AMITRIPTYLINE [Suspect]
     Active Substance: AMITRIPTYLINE
     Indication: Product used for unknown indication
     Route: 065
  2. OXYCODONE [Suspect]
     Active Substance: OXYCODONE
     Indication: Product used for unknown indication
     Route: 065
  3. NORTRIPTYLINE [Suspect]
     Active Substance: NORTRIPTYLINE
     Indication: Product used for unknown indication
     Route: 065

REACTIONS (4)
  - Pulmonary embolism [Fatal]
  - Deep vein thrombosis [Fatal]
  - Intentional overdose [Fatal]
  - Toxicity to various agents [Fatal]
